FAERS Safety Report 17687067 (Version 3)
Quarter: 2022Q2

REPORT INFORMATION
  Report Type: Other
  Country: US (occurrence: None)
  Receive Date: 20200421
  Receipt Date: 20220414
  Transmission Date: 20220721
  Serious: Yes (Other)
  Sender: FDA-Public Use
  Company Number: US-ROCHE-2585390

PATIENT
  Sex: Male

DRUGS (1)
  1. CELLCEPT [Suspect]
     Active Substance: MYCOPHENOLATE MOFETIL
     Indication: Radiculopathy
     Dosage: 1000 MG
     Route: 048

REACTIONS (4)
  - Nervous system disorder [Unknown]
  - Sjogren^s syndrome [Unknown]
  - Peripheral sensory neuropathy [Unknown]
  - Off label use [Unknown]
